FAERS Safety Report 24922557 (Version 1)
Quarter: 2025Q1

REPORT INFORMATION
  Report Type: Report from Study
  Country: JP (occurrence: JP)
  Receive Date: 20250204
  Receipt Date: 20250204
  Transmission Date: 20250409
  Serious: Yes (Hospitalization)
  Sender: ABBVIE
  Company Number: JP-ABBVIE-5730156

PATIENT
  Age: 56 Year
  Sex: Female
  Weight: 45 kg

DRUGS (4)
  1. VYALEV [Suspect]
     Active Substance: FOSCARBIDOPA\FOSLEVODOPA
     Indication: Parkinson^s disease
     Route: 058
     Dates: start: 20240402, end: 20240407
  2. VYALEV [Suspect]
     Active Substance: FOSCARBIDOPA\FOSLEVODOPA
     Route: 058
     Dates: start: 20240409, end: 20240409
  3. VYALEV [Suspect]
     Active Substance: FOSCARBIDOPA\FOSLEVODOPA
     Route: 058
     Dates: start: 20240402
  4. NEUPRO [Suspect]
     Active Substance: ROTIGOTINE
     Indication: Parkinson^s disease
     Dosage: 6.75 MILLIGRAM
     Route: 062

REACTIONS (8)
  - Delusion [Recovered/Resolved]
  - Hallucination, auditory [Recovered/Resolved]
  - Suicidal ideation [Recovered/Resolved]
  - Mental disorder [Unknown]
  - Bradyphrenia [Recovering/Resolving]
  - Malaise [Unknown]
  - Drug ineffective [Unknown]
  - Dyskinesia [Recovering/Resolving]

NARRATIVE: CASE EVENT DATE: 20240402
